FAERS Safety Report 9720757 (Version 1)
Quarter: 2013Q4

REPORT INFORMATION
  Report Type: Report from Study
  Country: AR (occurrence: AR)
  Receive Date: 20131129
  Receipt Date: 20131129
  Transmission Date: 20140711
  Serious: Yes (Other)
  Sender: FDA-Public Use
  Company Number: PHHY2013AR138596

PATIENT
  Sex: Female

DRUGS (1)
  1. EXFORGE D [Suspect]
     Indication: HYPERTENSION
     Dosage: 1 TABLET (160/10/12.5 MG) DAILY
     Route: 048
     Dates: start: 2013

REACTIONS (2)
  - Dermal cyst [Recovered/Resolved]
  - Condition aggravated [Recovered/Resolved]
